FAERS Safety Report 7731608-3 (Version None)
Quarter: 2011Q3

REPORT INFORMATION
  Report Type: 
  Country: None (occurrence: None)
  Receive Date: 20110906
  Receipt Date: 20110602
  Transmission Date: 20111222
  Serious: No
  Sender: FDA-Public Use
  Company Number: US-AMGEN-USASP2011028797

PATIENT
  Age: 78 Year
  Sex: Female

DRUGS (8)
  1. OTC-HP [Concomitant]
     Dosage: UNK UNK, QD
  2. METOPROLOL [Concomitant]
  3. POTASSIUM [Concomitant]
     Dosage: UNK
  4. LASIX [Concomitant]
  5. PROLIA [Suspect]
     Indication: OSTEOPOROSIS POSTMENOPAUSAL
     Dosage: 60 MG, Q6MO
     Dates: start: 20101111
  6. ALAVERT [Concomitant]
  7. AZOR                               /00595201/ [Concomitant]
  8. PREVACID [Concomitant]
     Dosage: UNK UNK, Q12H

REACTIONS (2)
  - DIARRHOEA [None]
  - INTRAOCULAR PRESSURE INCREASED [None]
